FAERS Safety Report 15076622 (Version 1)
Quarter: 2018Q2

REPORT INFORMATION
  Report Type: Spontaneous
  Country: US (occurrence: US)
  Receive Date: 20180627
  Receipt Date: 20180627
  Transmission Date: 20180711
  Serious: Yes (Hospitalization, Other)
  Sender: FDA-Public Use
  Company Number: US-MALLINCKRODT-T201802595

PATIENT
  Sex: Female

DRUGS (1)
  1. H.P. ACTHAR [Suspect]
     Active Substance: CORTICOTROPIN
     Indication: SYSTEMIC LUPUS ERYTHEMATOSUS
     Dosage: 1 ML (80 UNITS) TWICE WEEKLY
     Route: 058
     Dates: start: 20180331, end: 2018

REACTIONS (2)
  - Transfusion [Unknown]
  - Blister [Unknown]

NARRATIVE: CASE EVENT DATE: 2018
